FAERS Safety Report 11914208 (Version 1)
Quarter: 2016Q1

REPORT INFORMATION
  Report Type: Report from Study
  Country: CA (occurrence: CA)
  Receive Date: 20160113
  Receipt Date: 20160113
  Transmission Date: 20160526
  Serious: Yes (Hospitalization)
  Sender: FDA-Public Use
  Company Number: CA-ABBVIE-16P-028-1535414-00

PATIENT
  Sex: Male
  Weight: 89 kg

DRUGS (15)
  1. PANTOPRAZOLE SODIUM. [Concomitant]
     Active Substance: PANTOPRAZOLE SODIUM
     Indication: RECTAL HAEMORRHAGE
     Route: 048
     Dates: start: 201404
  2. ATROPINE. [Concomitant]
     Active Substance: ATROPINE
     Indication: EYE OPERATION
     Dosage: EYE DROPS
     Route: 061
     Dates: start: 20150609
  3. ALLOPURINOL. [Concomitant]
     Active Substance: ALLOPURINOL
     Indication: PROPHYLAXIS
     Route: 048
     Dates: start: 2008
  4. APO ROSUVASTATIN [Concomitant]
     Indication: PROPHYLAXIS
     Route: 048
     Dates: start: 2007
  5. TOBRADEX [Concomitant]
     Active Substance: DEXAMETHASONE\TOBRAMYCIN
     Indication: EYE OPERATION
     Dosage: EYE DROPS
     Route: 061
     Dates: start: 20150609
  6. NIFEDIPINE MYLAN [Concomitant]
     Indication: HYPERTENSION
     Route: 048
     Dates: start: 2012
  7. ASA [Concomitant]
     Active Substance: ASPIRIN
     Indication: PROPHYLAXIS
     Route: 048
     Dates: start: 2007
  8. CALCIUM [Concomitant]
     Active Substance: CALCIUM
     Indication: ROUTINE HEALTH MAINTENANCE
     Route: 048
     Dates: start: 20130906
  9. LUPRON DEPOT [Suspect]
     Active Substance: LEUPROLIDE ACETATE
     Indication: PRODUCT USED FOR UNKNOWN INDICATION
     Route: 030
     Dates: start: 20130906, end: 20150615
  10. ALLOPURINOL. [Concomitant]
     Active Substance: ALLOPURINOL
     Indication: GOUT
  11. AVODART [Concomitant]
     Active Substance: DUTASTERIDE
     Indication: PROSTATITIS
     Route: 048
     Dates: start: 2008
  12. VITAMINS [Concomitant]
     Active Substance: VITAMINS
     Indication: ROUTINE HEALTH MAINTENANCE
     Route: 048
     Dates: start: 20130906
  13. METFORMIN [Concomitant]
     Active Substance: METFORMIN HYDROCHLORIDE
     Indication: DIABETES MELLITUS
     Route: 048
     Dates: start: 201505
  14. TAMSULOSIN SANDOZ [Concomitant]
     Active Substance: TAMSULOSIN
     Indication: PROSTATISM
     Route: 048
     Dates: start: 2008
  15. ELIQUIS [Suspect]
     Active Substance: APIXABAN
     Indication: PULMONARY EMBOLISM
     Route: 048
     Dates: start: 20151207

REACTIONS (2)
  - Haemorrhoids [Unknown]
  - Rectal haemorrhage [Recovered/Resolved]

NARRATIVE: CASE EVENT DATE: 20151207
